FAERS Safety Report 8391516-4 (Version None)
Quarter: 2012Q1

REPORT INFORMATION
  Report Type: 
  Country: None (occurrence: None)
  Receive Date: 20120323
  Receipt Date: 20110505
  Transmission Date: 20120608
  Serious: Yes (Hospitalization, Other)
  Sender: FDA-Public Use
  Company Number: 163-21880-11033347

PATIENT
  Age: 83 Year
  Sex: Male

DRUGS (1)
  1. REVLIMID [Suspect]
     Indication: MYELODYSPLASTIC SYNDROME
     Dosage: 10 MG, 1 IN 1 D, PO
     Route: 048
     Dates: start: 20110124, end: 20110208

REACTIONS (2)
  - GOUT [None]
  - NEUTROPHIL COUNT DECREASED [None]
